FAERS Safety Report 7585465-9 (Version None)
Quarter: 2011Q3

REPORT INFORMATION
  Report Type: 
  Country: None (occurrence: None)
  Receive Date: 20110701
  Receipt Date: 20110609
  Transmission Date: 20111222
  Serious: Yes (Hospitalization, Other)
  Sender: FDA-Public Use
  Company Number: US-BAYER-201041434NA

PATIENT
  Age: 20 Year
  Sex: Female
  Weight: 90.703 kg

DRUGS (3)
  1. DROSPIRENONE AND ETHINYL ESTRADIOL [Suspect]
  2. YASMIN [Suspect]
     Indication: ACNE
     Dosage: UNK
     Dates: start: 20070115, end: 20100415
  3. YAZ [Suspect]

REACTIONS (6)
  - HYDRONEPHROSIS [None]
  - CALCULUS URETERIC [None]
  - CALCULUS URINARY [None]
  - INJURY [None]
  - NEPHROLITHIASIS [None]
  - OBSTRUCTIVE UROPATHY [None]
